FAERS Safety Report 8313902-0 (Version None)
Quarter: 2012Q2

REPORT INFORMATION
  Report Type: 
  Country: None (occurrence: None)
  Receive Date: 20120426
  Receipt Date: 20120426
  Transmission Date: 20120825
  Serious: Yes (Other)
  Sender: FDA-Public Use
  Company Number: None

PATIENT
  Age: 72 Year
  Sex: Male
  Weight: 81.646 kg

DRUGS (2)
  1. METOPROLOL SUCCINATE EXTENDED RELEASE [Suspect]
     Indication: HYPERTENSION
     Dosage: 50.0 MG
     Route: 048
     Dates: start: 20111125, end: 20120219
  2. METOOPROLOL SUCCINATE ER TABLET [Concomitant]
     Dosage: 50 MG
     Route: 048
     Dates: start: 20120220, end: 20120305

REACTIONS (3)
  - PALPITATIONS [None]
  - PRODUCT SUBSTITUTION ISSUE [None]
  - ARRHYTHMIA [None]
